FAERS Safety Report 9342738 (Version 4)
Quarter: 2013Q4

REPORT INFORMATION
  Report Type: Spontaneous
  Country: US (occurrence: US)
  Receive Date: 20130611
  Receipt Date: 20131010
  Transmission Date: 20140711
  Serious: No
  Sender: FDA-Public Use
  Company Number: US-PFIZER INC-2013175857

PATIENT
  Age: 38 Year
  Sex: Male
  Weight: 85.26 kg

DRUGS (7)
  1. LYRICA [Suspect]
     Indication: FIBROMYALGIA
     Dosage: 100 MG, 4X/DAY
     Route: 048
     Dates: start: 2007
  2. LYRICA [Suspect]
     Dosage: 200 MG, 2X/DAY
     Route: 048
  3. LYRICA [Suspect]
     Dosage: 100 MG, 4X/DAY
     Route: 048
     Dates: start: 20130925
  4. ZANTAC [Concomitant]
     Dosage: 150 MG, UNK
  5. BENADRYL [Concomitant]
     Dosage: 25 MG, UNK
  6. KENALOG [Concomitant]
  7. MARCAINE [Concomitant]

REACTIONS (3)
  - Hypoglycaemia [Unknown]
  - Abdominal discomfort [Unknown]
  - Nausea [Unknown]
